FAERS Safety Report 5454907-7 (Version None)
Quarter: 2007Q3

REPORT INFORMATION
  Report Type: 
  Country: None (occurrence: None)
  Receive Date: 20070917
  Receipt Date: 20061013
  Transmission Date: 20080115
  Serious: No
  Sender: FDA-Public Use
  Company Number: US-ASTRAZENECA-2006UW19906

PATIENT
  Age: 63 Year
  Sex: Female
  Weight: 74.8 kg

DRUGS (7)
  1. SEROQUEL [Suspect]
     Indication: BIPOLAR DISORDER
     Route: 048
     Dates: start: 20061001
  2. SEROQUEL [Suspect]
     Indication: SCHIZOPHRENIA
     Route: 048
     Dates: start: 20061001
  3. WELLBUTRIN [Concomitant]
  4. PROZAC [Concomitant]
  5. ATENOLOL [Concomitant]
     Route: 048
  6. LISINOPRIL [Concomitant]
     Route: 048
  7. XANAX [Concomitant]

REACTIONS (2)
  - DISORIENTATION [None]
  - ILL-DEFINED DISORDER [None]
